FAERS Safety Report 24114408 (Version 1)
Quarter: 2024Q3

REPORT INFORMATION
  Report Type: Spontaneous
  Country: CN (occurrence: CN)
  Receive Date: 20240720
  Receipt Date: 20240720
  Transmission Date: 20241016
  Serious: Yes (Life-Threatening)
  Sender: RANBAXY
  Company Number: CN-SUN PHARMACEUTICAL INDUSTRIES LTD-2024R1-457318

PATIENT
  Age: 15 Year
  Sex: Male

DRUGS (2)
  1. DOXORUBICIN [Suspect]
     Active Substance: DOXORUBICIN
     Indication: Alveolar soft part sarcoma
     Dosage: 60 MILLIGRAM/SQ. METER, ONCE IN 3 WEEKS
     Route: 041
  2. IFOSFAMIDE [Suspect]
     Active Substance: IFOSFAMIDE
     Indication: Alveolar soft part sarcoma
     Dosage: 7.5 G/M2
     Route: 041

REACTIONS (1)
  - Liver function test abnormal [Unknown]
